FAERS Safety Report 10653917 (Version 1)
Quarter: 2014Q4

REPORT INFORMATION
  Report Type: Spontaneous
  Country: US (occurrence: None)
  Receive Date: 20141212
  Receipt Date: 20141212
  Transmission Date: 20150529
  Serious: Yes (Other)
  Sender: FDA-Public Use
  Company Number: FK201406108

PATIENT
  Age: 46 Year
  Sex: Male

DRUGS (5)
  1. LEVETIRACETAM. [Suspect]
     Active Substance: LEVETIRACETAM
     Indication: SEIZURE
     Route: 048
  2. IFOSFAMIDE (IFOSFAMIDE) [Concomitant]
     Active Substance: IFOSFAMIDE
  3. ETOPOSIDE (ETOPOSIDE) [Concomitant]
     Active Substance: ETOPOSIDE
  4. METHOTREXATE [Suspect]
     Active Substance: METHOTREXATE
     Indication: OSTEOSARCOMA
     Dosage: 5 CYCLE, INTRAVENOUS (NOT OTHERWISE SPECIFIED)
     Route: 042
  5. LISINOPRIL (LISINOPRIL) [Concomitant]
     Active Substance: LISINOPRIL

REACTIONS (2)
  - Drug interaction [None]
  - Drug clearance decreased [None]
